FAERS Safety Report 8608767 (Version 2)
Quarter: 2013Q1

REPORT INFORMATION
  Report Type: Spontaneous
  Country: FR (occurrence: FR)
  Receive Date: 20120611
  Receipt Date: 20130121
  Transmission Date: 20140127
  Serious: Yes (Hospitalization, Other)
  Sender: FDA-Public Use
  Company Number: FR-ELI_LILLY_AND_COMPANY-FR201206000609

PATIENT
  Age: 78 Year
  Sex: Female
  Weight: 61 kg

DRUGS (10)
  1. GEMZAR [Suspect]
     Indication: BREAST CANCER RECURRENT
     Dosage: UNK
     Dates: start: 2005
  2. GEMZAR [Suspect]
     Dosage: 1640 MG, UNK
     Route: 042
     Dates: start: 20120509, end: 20120509
  3. XELODA [Concomitant]
     Indication: BREAST CANCER RECURRENT
     Dosage: 1 G, BID
     Dates: start: 2007, end: 20120516
  4. XELODA [Concomitant]
     Dosage: UNK
     Dates: start: 20120509, end: 20120516
  5. ATENOLOL [Concomitant]
     Dosage: 100 MG, UNK
  6. MODURETIC [Concomitant]
  7. INEXIUM [Concomitant]
  8. PRIMPERAN [Concomitant]
  9. MOTILIUM [Concomitant]
  10. CORTANCYL [Concomitant]
     Dosage: 20 MG, UNK

REACTIONS (7)
  - Myocardial infarction [Recovered/Resolved with Sequelae]
  - Thrombocytopenia [Recovered/Resolved]
  - Neutropenia [Recovered/Resolved]
  - Leukopenia [Unknown]
  - Coronary artery disease [Unknown]
  - Coronary artery stenosis [Unknown]
  - Thrombosis [Unknown]
